FAERS Safety Report 5304661-4 (Version None)
Quarter: 2007Q2

REPORT INFORMATION
  Report Type: 
  Country: None (occurrence: None)
  Receive Date: 20070416
  Receipt Date: 20070402
  Transmission Date: 20071010
  Serious: Yes (Hospitalization)
  Sender: FDA-Public Use
  Company Number: L07-JPN-01437-01

PATIENT
  Age: 46 Year
  Sex: Male

DRUGS (8)
  1. CARBAMAZEPINE [Suspect]
     Indication: AGITATION
     Dosage: 600 MG QD
  2. LITHIUM CARBONATE [Suspect]
     Dosage: 800 MG QD
  3. PROMETHAZINE HCL [Suspect]
     Dosage: 50 MG QD
  4. FLUNITRAZEPAM [Suspect]
     Dosage: 2 MG QD
  5. FLUNITRAZEPAM [Suspect]
  6. BULOTIZOLAM [Suspect]
     Dosage: 10 MG QD
  7. NIMETAZEPAM [Suspect]
     Dosage: 5 MG QD
  8. OXATOMIDE [Suspect]
     Dosage: 60 MG QD

REACTIONS (6)
  - CATATONIA [None]
  - CENTRAL NERVOUS SYSTEM LESION [None]
  - DIABETES INSIPIDUS [None]
  - NUCLEAR MAGNETIC RESONANCE IMAGING BRAIN ABNORMAL [None]
  - SCHIZOPHRENIA [None]
  - STUPOR [None]
